FAERS Safety Report 6405270-6 (Version None)
Quarter: 2009Q4

REPORT INFORMATION
  Report Type: 
  Country: None (occurrence: None)
  Receive Date: 20091014
  Receipt Date: 20090930
  Transmission Date: 20100525
  Serious: Yes (Death)
  Sender: FDA-Public Use
  Company Number: 2009AC000045

PATIENT
  Sex: Female

DRUGS (11)
  1. DIGOXIN [Suspect]
     Dosage: 0.125 MG; QD
  2. FOLIC ACID [Concomitant]
  3. POTASSIUM CHLORIDE [Concomitant]
  4. FUROSEMIDE [Concomitant]
  5. MEGESTROL ACETATE [Concomitant]
  6. LEXAPRO [Concomitant]
  7. CENTRUM [Concomitant]
  8. KETOPROFEN [Concomitant]
  9. PLAVIX [Concomitant]
  10. PROTONIX [Concomitant]
  11. NITROGLYCERIN [Concomitant]

REACTIONS (11)
  - ANHEDONIA [None]
  - BRADYCARDIA [None]
  - CARDIOACTIVE DRUG LEVEL INCREASED [None]
  - DEPRESSION [None]
  - EMOTIONAL DISTRESS [None]
  - GALLSTONE ILEUS [None]
  - HYPERLIPIDAEMIA [None]
  - HYPOTENSION [None]
  - MULTIPLE INJURIES [None]
  - PAIN [None]
  - TACHYCARDIA [None]
